FAERS Safety Report 23146509 (Version 1)
Quarter: 2023Q4

REPORT INFORMATION
  Report Type: Spontaneous
  Country: BR (occurrence: BR)
  Receive Date: 20231105
  Receipt Date: 20231105
  Transmission Date: 20240110
  Serious: Yes (Hospitalization, Other)
  Sender: FDA-Public Use
  Company Number: BR-EPICPHARMA-BR-2023EPCLIT01698

PATIENT
  Sex: Female

DRUGS (7)
  1. CARBOPLATIN [Suspect]
     Active Substance: CARBOPLATIN
     Indication: Invasive ductal breast carcinoma
     Route: 042
  2. PERTUZUMAB [Concomitant]
     Active Substance: PERTUZUMAB
     Route: 065
  3. LIPEGFILGRASTIM [Concomitant]
     Active Substance: LIPEGFILGRASTIM
     Route: 065
  4. TRASTUZUMAB [Concomitant]
     Active Substance: TRASTUZUMAB
     Route: 065
  5. DOCETAXEL [Concomitant]
     Active Substance: DOCETAXEL\DOCETAXEL ANHYDROUS
     Route: 065
  6. GOSERELIN [Concomitant]
     Active Substance: GOSERELIN
     Route: 065
  7. APREPITANT [Concomitant]
     Active Substance: APREPITANT
     Route: 065

REACTIONS (4)
  - Haematuria [Recovered/Resolved]
  - Renal impairment [Recovered/Resolved]
  - Anaemia [Unknown]
  - Product use in unapproved indication [Unknown]
